FAERS Safety Report 23688394 (Version 1)
Quarter: 2024Q1

REPORT INFORMATION
  Report Type: Spontaneous
  Country: US (occurrence: None)
  Receive Date: 20240329
  Receipt Date: 20240329
  Transmission Date: 20240410
  Serious: Yes (Death)
  Sender: FDA-Public Use
  Company Number: None

PATIENT
  Age: 90 Year
  Sex: Female
  Weight: 82.44 kg

DRUGS (10)
  1. REVLIMID [Suspect]
     Active Substance: LENALIDOMIDE
     Indication: Plasma cell myeloma
     Dosage: FREQUENCY : DAILY;?
     Route: 048
     Dates: start: 20231130, end: 20240307
  2. HYDRALAZINE [Concomitant]
     Active Substance: HYDRALAZINE HYDROCHLORIDE
  3. metoprolol succinate ER 25 mg tablet,extended release 24 hr [Concomitant]
  4. FUROSEMIDE [Concomitant]
     Active Substance: FUROSEMIDE
  5. Iron (ferrous sulfate) 325 mg (65 mg iron) tablet [Concomitant]
  6. pravastatin 20 mg tablet [Concomitant]
  7. torsemide 20 mg tablet [Concomitant]
  8. calcitriol 0.5 mcg capsule [Concomitant]
  9. levothyroxine 75 mcg tablet [Concomitant]
  10. nifedipine ER 90 mg tablet,extended release 24 hr [Concomitant]

REACTIONS (1)
  - Death [None]

NARRATIVE: CASE EVENT DATE: 20240314
